FAERS Safety Report 7964357-7 (Version None)
Quarter: 2011Q4

REPORT INFORMATION
  Report Type: 
  Country: None (occurrence: None)
  Receive Date: 20111208
  Receipt Date: 20111128
  Transmission Date: 20120403
  Serious: Yes (Hospitalization)
  Sender: FDA-Public Use
  Company Number: US-BAYER-2011-037232

PATIENT
  Age: 19 Year
  Sex: Female
  Weight: 73.469 kg

DRUGS (9)
  1. TESSALON [Concomitant]
  2. FLEXERIL [Concomitant]
  3. PREDNISONE TAB [Concomitant]
  4. ULTRAM [Concomitant]
  5. GUAIFENESIN/CODEINE [Concomitant]
  6. SINGULAIR [Concomitant]
  7. LORTAB [Concomitant]
  8. YAZ [Suspect]
     Indication: ACNE
     Dosage: UNK
     Dates: start: 20081201, end: 20090301
  9. ALBUTEROL [Concomitant]

REACTIONS (7)
  - INJURY [None]
  - ANXIETY [None]
  - PAIN [None]
  - DEEP VEIN THROMBOSIS [None]
  - ANHEDONIA [None]
  - THROMBOSIS [None]
  - ARTERIAL THROMBOSIS LIMB [None]
